FAERS Safety Report 22585825 (Version 1)
Quarter: 2023Q2

REPORT INFORMATION
  Report Type: Spontaneous
  Country: IT (occurrence: IT)
  Receive Date: 20230610
  Receipt Date: 20230610
  Transmission Date: 20230722
  Serious: Yes (Hospitalization)
  Sender: FDA-Public Use
  Company Number: None

PATIENT
  Age: 22 Year
  Sex: Female
  Weight: 60 kg

DRUGS (3)
  1. QUETIAPINE [Suspect]
     Active Substance: QUETIAPINE
     Indication: Personality disorder
     Dosage: UNK (9 CPR DA 300MG A RILASCIO PROLUNGATO)
     Route: 048
     Dates: start: 20230119, end: 20230119
  2. LAMICTAL [Concomitant]
     Active Substance: LAMOTRIGINE
     Indication: Depression
     Dosage: UNK
     Route: 048
  3. TAVOR [Concomitant]
     Indication: Anxiety
     Dosage: UNK
     Route: 065

REACTIONS (2)
  - Drug abuse [Recovered/Resolved]
  - Hypokinesia [Recovered/Resolved]

NARRATIVE: CASE EVENT DATE: 20230119
